FAERS Safety Report 7008240-2 (Version None)
Quarter: 2010Q3

REPORT INFORMATION
  Report Type: 
  Country: None (occurrence: None)
  Receive Date: 20100922
  Receipt Date: 20100909
  Transmission Date: 20110219
  Serious: Yes (Life-Threatening, Other)
  Sender: FDA-Public Use
  Company Number: JP-TYCO HEALTHCARE/MALLINCKRODT-T201001828

PATIENT
  Age: 19 Year
  Sex: Female
  Weight: 44 kg

DRUGS (1)
  1. OPTIRAY 350 [Suspect]
     Indication: COMPUTERISED TOMOGRAM
     Dosage: 80 ML, SINGLE
     Route: 042
     Dates: start: 20100815, end: 20100815

REACTIONS (4)
  - COUGH [None]
  - GLOSSODYNIA [None]
  - OROPHARYNGEAL DISCOMFORT [None]
  - OROPHARYNGEAL PAIN [None]
